FAERS Safety Report 4509682-7 (Version None)
Quarter: 2004Q4

REPORT INFORMATION
  Report Type: 
  Country: None (occurrence: None)
  Receive Date: 20041124
  Receipt Date: 20041021
  Transmission Date: 20050328
  Serious: Yes (Other)
  Sender: FDA-Public Use
  Company Number: US-JNJFOC-20041104893

PATIENT
  Sex: Female
  Weight: 70.76 kg

DRUGS (4)
  1. CONCERTA [Suspect]
     Route: 049
     Dates: start: 20000101, end: 20041017
  2. BIAXIN [Concomitant]
  3. PLAQUENIL [Concomitant]
  4. TIMOPTIC [Concomitant]

REACTIONS (3)
  - ACCOMMODATION DISORDER [None]
  - ANGLE CLOSURE GLAUCOMA [None]
  - VISION BLURRED [None]
